FAERS Safety Report 9434617 (Version 3)
Quarter: 2013Q4

REPORT INFORMATION
  Report Type: Spontaneous
  Country: US (occurrence: US)
  Receive Date: 20130801
  Receipt Date: 20131025
  Transmission Date: 20140711
  Serious: Yes (Other)
  Sender: FDA-Public Use
  Company Number: US-PFIZER INC-2013222872

PATIENT
  Age: 51 Year
  Sex: Female
  Weight: 67.12 kg

DRUGS (9)
  1. NEURONTIN [Suspect]
     Indication: SPINAL COLUMN INJURY
     Dosage: 100 MG, 3X/DAY
     Dates: start: 201109
  2. NEURONTIN [Suspect]
     Indication: NERVE INJURY
  3. NEURONTIN [Suspect]
     Indication: NEURALGIA
  4. OXYCODONE HYDROCHLORIDE [Suspect]
     Indication: NEURALGIA
     Dosage: 7.5 MG, 1X/DAY
  5. OXYCODONE HYDROCHLORIDE [Suspect]
     Dosage: 5 MG, 6X/DAY
  6. HYDROCODONE [Suspect]
     Indication: NEURALGIA
     Dosage: 5 MG, 1X/DAY
  7. PERCOCET [Suspect]
     Indication: NEURALGIA
     Dosage: UNK
  8. PEPPERMINT OIL [Suspect]
     Dosage: UNK
  9. ZOLOFT [Concomitant]
     Indication: DEPRESSION
     Dosage: 100 MG, 1X/DAY

REACTIONS (5)
  - Spinal disorder [Unknown]
  - Swelling face [Recovered/Resolved]
  - Drug hypersensitivity [Unknown]
  - Muscle tightness [Recovered/Resolved]
  - Drug ineffective [Unknown]
